FAERS Safety Report 7211033-4 (Version None)
Quarter: 2011Q1

REPORT INFORMATION
  Report Type: 
  Country: None (occurrence: None)
  Receive Date: 20110105
  Receipt Date: 20101216
  Transmission Date: 20110831
  Serious: Yes (Death, Other)
  Sender: FDA-Public Use
  Company Number: GR-CELGENEUS-066-21880-10122316

PATIENT

DRUGS (5)
  1. REVLIMID [Suspect]
     Indication: PRIMARY AMYLOIDOSIS
     Dosage: 10 OR 15MG
     Route: 048
  2. HEPARIN LMW [Concomitant]
     Route: 065
  3. ASPIRIN [Concomitant]
     Dosage: LOW DOSE
     Route: 065
  4. DEXAMETHASONE [Suspect]
     Indication: PRIMARY AMYLOIDOSIS
     Route: 048
  5. CYCLOPHOSPHAMIDE [Suspect]
     Indication: PRIMARY AMYLOIDOSIS
     Dosage: 50 OR 100MG
     Route: 048

REACTIONS (10)
  - DEEP VEIN THROMBOSIS [None]
  - NEUTROPENIA [None]
  - DISEASE PROGRESSION [None]
  - CEREBROVASCULAR ACCIDENT [None]
  - ANAEMIA [None]
  - DEATH [None]
  - CARDIAC AMYLOIDOSIS [None]
  - ASTHENIA [None]
  - RASH [None]
  - INFECTION [None]
